FAERS Safety Report 14412358 (Version 1)
Quarter: 2018Q1

REPORT INFORMATION
  Report Type: Report from Study
  Country: GB (occurrence: GB)
  Receive Date: 20180119
  Receipt Date: 20180119
  Transmission Date: 20180509
  Serious: Yes (Death)
  Sender: FDA-Public Use
  Company Number: GB-DSJP-DSU-2018-100275

PATIENT

DRUGS (2)
  1. CS-8663 [Suspect]
     Active Substance: AMLODIPINE BESYLATE\OLMESARTAN MEDOXOMIL
     Dosage: 40 MG, QD
     Route: 065
  2. CS-8663 [Suspect]
     Active Substance: AMLODIPINE BESYLATE\OLMESARTAN MEDOXOMIL
     Indication: SYSTOLIC HYPERTENSION
     Dosage: 20 MG, QD
     Route: 065

REACTIONS (1)
  - Respiratory failure [Fatal]
